FAERS Safety Report 4659522-0 (Version None)
Quarter: 2005Q2

REPORT INFORMATION
  Report Type: 
  Country: None (occurrence: None)
  Receive Date: 20050511
  Receipt Date: 20050427
  Transmission Date: 20051028
  Serious: Yes (Hospitalization)
  Sender: FDA-Public Use
  Company Number: GB-MERCK-0504GBR00191

PATIENT
  Age: 66 Year
  Sex: Male

DRUGS (6)
  1. ZOCOR [Suspect]
     Indication: HYPERCHOLESTEROLAEMIA
     Route: 065
  2. CYPROTERONE ACETATE [Suspect]
     Indication: BENIGN PROSTATIC HYPERPLASIA
     Route: 048
  3. AMLODIPINE BESYLATE [Concomitant]
     Indication: HYPERTENSION
     Route: 065
  4. ALLOPURINOL [Concomitant]
     Route: 065
  5. CANDESARTAN [Concomitant]
     Route: 065
  6. OMEPRAZOLE [Concomitant]
     Route: 065

REACTIONS (6)
  - ASTHENIA [None]
  - DRUG INTERACTION [None]
  - MYALGIA [None]
  - PROSTATE CANCER [None]
  - PROSTATIC SPECIFIC ANTIGEN INCREASED [None]
  - RHABDOMYOLYSIS [None]
